FAERS Safety Report 15025181 (Version 1)
Quarter: 2018Q2

REPORT INFORMATION
  Report Type: Spontaneous
  Country: CA (occurrence: CA)
  Receive Date: 20180618
  Receipt Date: 20180618
  Transmission Date: 20180711
  Serious: Yes (Other)
  Sender: FDA-Public Use
  Company Number: CA-GEHC-2018CSU002339

PATIENT

DRUGS (2)
  1. SORBITOL. [Concomitant]
     Active Substance: SORBITOL
     Dosage: 100 ML WITH 2 LITERS OF WATER, SINGLE
     Route: 048
     Dates: start: 20180509, end: 20180509
  2. OMNIPAQUE [Suspect]
     Active Substance: IOHEXOL
     Indication: PRODUCT USED FOR UNKNOWN INDICATION
     Dosage: 100 ML, SINGLE
     Route: 042
     Dates: start: 20180509, end: 20180509

REACTIONS (3)
  - Urticaria [Recovered/Resolved]
  - Dysphonia [Recovered/Resolved]
  - Pruritus [Recovered/Resolved]

NARRATIVE: CASE EVENT DATE: 20180509
